FAERS Safety Report 19587548 (Version 1)
Quarter: 2021Q3

REPORT INFORMATION
  Report Type: Report from Study
  Country: US (occurrence: US)
  Receive Date: 20210721
  Receipt Date: 20210721
  Transmission Date: 20211014
  Serious: Yes (Other)
  Sender: FDA-Public Use
  Company Number: US-SA-2021SA236604

PATIENT
  Age: 82 Year
  Sex: Female

DRUGS (2)
  1. DUPILUMAB [Suspect]
     Active Substance: DUPILUMAB
     Indication: ECZEMA
     Dosage: UNK, 1X
  2. DUPILUMAB [Suspect]
     Active Substance: DUPILUMAB
     Dosage: UNK

REACTIONS (2)
  - Visual impairment [Not Recovered/Not Resolved]
  - Cataract [Unknown]
